FAERS Safety Report 6358182-0 (Version None)
Quarter: 2009Q3

REPORT INFORMATION
  Report Type: 
  Country: None (occurrence: None)
  Receive Date: 20090916
  Receipt Date: 20090910
  Transmission Date: 20100115
  Serious: Yes (Hospitalization, Other)
  Sender: FDA-Public Use
  Company Number: US-ELI_LILLY_AND_COMPANY-US200909002552

PATIENT
  Sex: Female
  Weight: 91.61 kg

DRUGS (19)
  1. BYETTA [Suspect]
     Indication: TYPE 2 DIABETES MELLITUS
     Dosage: 5 UG, 2/D
     Route: 058
     Dates: start: 20080601, end: 20080701
  2. BYETTA [Suspect]
     Dosage: 10 UG, 2/D
     Route: 058
     Dates: start: 20080701, end: 20090101
  3. BYETTA [Suspect]
     Dosage: 10 UCI, 2/D
     Route: 058
     Dates: start: 20090101
  4. GLUCOPHAGE [Concomitant]
     Indication: TYPE 2 DIABETES MELLITUS
     Dosage: UNK, UNKNOWN
     Dates: start: 20060101, end: 20090401
  5. VALPROIC ACID [Concomitant]
     Indication: MOOD SWINGS
     Dosage: 1250 MG, 2/D
     Route: 048
  6. TEGRETOL [Concomitant]
     Dosage: 200 MG, EACH MORNING
     Route: 048
  7. TEGRETOL [Concomitant]
     Dosage: 400 MG, EACH EVENING
     Route: 048
  8. TRAZODONE [Concomitant]
     Dosage: 300 MG, EACH EVENING
     Route: 048
  9. ASPIRIN [Concomitant]
     Dosage: 81 MG, DAILY (1/D)
     Route: 048
  10. CYMBALTA [Concomitant]
     Dosage: 60 MG, 2/D
     Route: 048
  11. PREMARIN [Concomitant]
     Dosage: 0.9 MG, DAILY (1/D)
     Route: 048
  12. PREMARIN [Concomitant]
     Dosage: 0.625 MG, DAILY (1/D)
     Route: 048
  13. LYRICA [Concomitant]
     Dosage: 100 MG, 3/D
     Route: 048
  14. REMERON [Concomitant]
     Dosage: 60 MG, EACH EVENING
     Route: 048
  15. NEXIUM [Concomitant]
     Dosage: 40 MG, 2/D
     Route: 048
  16. KLONOPIN [Concomitant]
     Dosage: 3 MG, EACH EVENING
     Route: 048
  17. LEVOTHYROXINE SODIUM [Concomitant]
     Dosage: 75 UG, DAILY (1/D)
     Route: 048
  18. LIPITOR [Concomitant]
     Dosage: 20 MG, DAILY (1/D)
     Route: 048
  19. ZANTAC [Concomitant]
     Dosage: UNK, 2/D
     Route: 048

REACTIONS (4)
  - OFF LABEL USE [None]
  - SEPSIS [None]
  - URINARY TRACT INFECTION [None]
  - WEIGHT DECREASED [None]
